FAERS Safety Report 5227857-9 (Version None)
Quarter: 2007Q1

REPORT INFORMATION
  Report Type: 
  Country: None (occurrence: None)
  Receive Date: 20070202
  Receipt Date: 20070124
  Transmission Date: 20070707
  Serious: Yes (Other)
  Sender: FDA-Public Use
  Company Number: CA-PFIZER INC-2007004740

PATIENT
  Sex: Female

DRUGS (4)
  1. HEMABATE [Suspect]
     Indication: POSTPARTUM HAEMORRHAGE
     Route: 042
     Dates: start: 20070101, end: 20070101
  2. OXYTOCIN [Concomitant]
     Route: 042
     Dates: start: 20070101, end: 20070101
  3. FENTANYL [Concomitant]
     Route: 042
     Dates: start: 20070101, end: 20070101
  4. BUPIVACAINE [Concomitant]
     Route: 042
     Dates: start: 20070101, end: 20070101

REACTIONS (5)
  - BLOOD PRESSURE INCREASED [None]
  - HEART RATE INCREASED [None]
  - HYPERHIDROSIS [None]
  - INCORRECT ROUTE OF DRUG ADMINISTRATION [None]
  - NAUSEA [None]
